FAERS Safety Report 14325760 (Version 1)
Quarter: 2017Q4

REPORT INFORMATION
  Report Type: Spontaneous
  Country: US (occurrence: US)
  Receive Date: 20171226
  Receipt Date: 20171226
  Transmission Date: 20180321
  Serious: No
  Sender: FDA-Public Use
  Company Number: PHEH2017US039910

PATIENT
  Sex: Male

DRUGS (1)
  1. TRIAMCINOLONE ACETONIDE. [Suspect]
     Active Substance: TRIAMCINOLONE ACETONIDE
     Indication: PRURITUS ALLERGIC
     Dosage: UNK UNK, QD
     Route: 065
     Dates: start: 201711

REACTIONS (2)
  - Incorrect dose administered [Not Recovered/Not Resolved]
  - Product packaging quantity issue [Not Recovered/Not Resolved]
